FAERS Safety Report 8841985 (Version 1)
Quarter: 2012Q4

REPORT INFORMATION
  Report Type: Spontaneous
  Country: US (occurrence: None)
  Receive Date: 20121015
  Receipt Date: 20121015
  Transmission Date: 20130627
  Serious: Yes (Hospitalization, Disabling)
  Sender: FDA-Public Use
  Company Number: None

PATIENT
  Age: 53 Year
  Sex: Female
  Weight: 58.97 kg

DRUGS (1)
  1. MEDROXYPROGESTERONE [Suspect]
     Indication: VAGINAL BLEEDING
     Dates: start: 20011010, end: 2006

REACTIONS (5)
  - Dizziness [None]
  - Blood pressure increased [None]
  - Fall [None]
  - Eye disorder [None]
  - Visual impairment [None]
